FAERS Safety Report 8351083-8 (Version None)
Quarter: 2012Q2

REPORT INFORMATION
  Report Type: 
  Country: None (occurrence: None)
  Receive Date: 20120510
  Receipt Date: 20120508
  Transmission Date: 20120825
  Serious: Yes (Life-Threatening, Hospitalization)
  Sender: FDA-Public Use
  Company Number: PHHY2012NO039061

PATIENT
  Age: 48 Year
  Sex: Female

DRUGS (5)
  1. INSULATARD PENFILL [Concomitant]
     Indication: TYPE 1 DIABETES MELLITUS
     Route: 058
  2. NOZINAN [Interacting]
     Dosage: 5 MG, QD
     Route: 048
  3. NEXIUM [Concomitant]
     Indication: GASTROOESOPHAGEAL REFLUX DISEASE
     Dosage: 40 MG, QD
     Route: 048
  4. VENLAFAXINE [Suspect]
     Indication: DEPRESSION
     Dosage: 150 MG, QD
     Route: 048
     Dates: end: 20120413
  5. TENORMIN [Concomitant]
     Indication: ANGINA PECTORIS
     Dosage: 25 MG, BID
     Route: 048

REACTIONS (6)
  - ELECTROCARDIOGRAM QT PROLONGED [None]
  - CARDIAC ARREST [None]
  - VENTRICULAR TACHYCARDIA [None]
  - TORSADE DE POINTES [None]
  - ACUTE MYOCARDIAL INFARCTION [None]
  - DRUG INTERACTION [None]
